FAERS Safety Report 8215820-5 (Version None)
Quarter: 2012Q1

REPORT INFORMATION
  Report Type: 
  Country: None (occurrence: None)
  Receive Date: 20120316
  Receipt Date: 20120315
  Transmission Date: 20120608
  Serious: Yes (Death, Other)
  Sender: FDA-Public Use
  Company Number: NZ-PURDUE-USA-2009-0083814

PATIENT
  Age: 19 Year
  Sex: Female

DRUGS (3)
  1. OXYCONTIN [Suspect]
     Indication: PAIN
     Route: 048
  2. OXYCONTIN [Suspect]
     Indication: DRUG ABUSE
  3. METHADONE HCL [Suspect]
     Indication: DRUG ABUSE

REACTIONS (4)
  - OVERDOSE [None]
  - DRUG ABUSE [None]
  - DEATH [None]
  - DRUG INTERACTION [None]
